FAERS Safety Report 22090351 (Version 2)
Quarter: 2023Q1

REPORT INFORMATION
  Report Type: Spontaneous
  Country: GB (occurrence: GB)
  Receive Date: 20230313
  Receipt Date: 20230325
  Transmission Date: 20230417
  Serious: Yes (Other)
  Sender: FDA-Public Use
  Company Number: GB-002147023-NVSC2022GB238544

PATIENT
  Age: 37 Year
  Sex: Female

DRUGS (1)
  1. KESIMPTA [Suspect]
     Active Substance: OFATUMUMAB
     Indication: Product used for unknown indication
     Dosage: UNK UNK, QMO (AROUND 4 MONTHS)
     Route: 058

REACTIONS (5)
  - Multiple sclerosis relapse [Recovering/Resolving]
  - Mobility decreased [Unknown]
  - Urinary tract infection [Recovering/Resolving]
  - Malaise [Unknown]
  - General physical health deterioration [Recovering/Resolving]
